FAERS Safety Report 13110746 (Version 2)
Quarter: 2017Q1

REPORT INFORMATION
  Report Type: Report from Study
  Country: US (occurrence: US)
  Receive Date: 20170112
  Receipt Date: 20170117
  Transmission Date: 20170428
  Serious: Yes (Hospitalization, Other)
  Sender: FDA-Public Use
  Company Number: US-BAXALTA-2017BLT000195

PATIENT
  Age: 67 Year
  Sex: Female
  Weight: 65.77 kg

DRUGS (2)
  1. GAMMAGARD LIQUID [Suspect]
     Active Substance: HUMAN IMMUNOGLOBULIN G
     Dosage: 75 G, EVERY 4 WK
     Route: 042
     Dates: start: 2010
  2. GAMMAGARD LIQUID [Suspect]
     Active Substance: HUMAN IMMUNOGLOBULIN G
     Indication: MULTIFOCAL MOTOR NEUROPATHY
     Dosage: 75 G, EVERY 4 WK
     Route: 042
     Dates: start: 20161014

REACTIONS (3)
  - Atrial fibrillation [Recovered/Resolved]
  - Cerebrovascular accident [Recovered/Resolved]
  - Thrombosis [Recovered/Resolved]

NARRATIVE: CASE EVENT DATE: 20161015
